FAERS Safety Report 4313643-0 (Version None)
Quarter: 2004Q1

REPORT INFORMATION
  Report Type: 
  Country: None (occurrence: None)
  Receive Date: 20040308
  Receipt Date: 20040224
  Transmission Date: 20041129
  Serious: Yes (Hospitalization, Disabling, Other)
  Sender: FDA-Public Use
  Company Number: PHFR2004GB01182

PATIENT
  Age: 32 Year
  Sex: Female

DRUGS (4)
  1. CLOFAZIMINE [Suspect]
     Indication: MELKERSSON-ROSENTHAL SYNDROME
     Dosage: 100MG/INTERMITTENTLY
     Route: 048
     Dates: start: 19970201, end: 20031001
  2. ERYTHROMYCIN [Concomitant]
     Indication: MELKERSSON-ROSENTHAL SYNDROME
     Dosage: 500 MG, BID
     Route: 048
  3. LOESTRIN 1.5/30 [Concomitant]
     Dosage: 30 UNK/DAY
     Route: 065
  4. DAPSONE [Concomitant]
     Indication: MELKERSSON-ROSENTHAL SYNDROME
     Dosage: 50MG/DAY
     Route: 065

REACTIONS (2)
  - CATARACT [None]
  - SURGERY [None]
